FAERS Safety Report 5623977-5 (Version None)
Quarter: 2008Q1

REPORT INFORMATION
  Report Type: 
  Country: None (occurrence: None)
  Receive Date: 20080213
  Receipt Date: 20080204
  Transmission Date: 20080703
  Serious: Yes (Other)
  Sender: FDA-Public Use
  Company Number: US-JNJFOC-20071008039

PATIENT
  Sex: Female
  Weight: 57.61 kg

DRUGS (15)
  1. REMICADE [Suspect]
     Route: 042
  2. REMICADE [Suspect]
     Indication: RHEUMATOID ARTHRITIS
     Route: 042
  3. METHOTREXATE [Concomitant]
     Indication: RHEUMATOID ARTHRITIS
     Route: 048
  4. PREDNISONE TAB [Concomitant]
  5. PREDNISONE TAB [Concomitant]
     Indication: RHEUMATOID ARTHRITIS
  6. INDERAL [Concomitant]
     Indication: DRUG USE FOR UNKNOWN INDICATION
  7. ANTIVERT [Concomitant]
  8. FOLIC ACID [Concomitant]
  9. HUMIRA [Concomitant]
  10. LIPITOR [Concomitant]
  11. PROPRANALOL [Concomitant]
  12. SYNTHROID [Concomitant]
  13. TRIAMTERENE AND HYDROCHLOROTHIAZIDE [Concomitant]
  14. VALIUM [Concomitant]
  15. ARTIFICAL TEARS [Concomitant]

REACTIONS (4)
  - CEREBROVASCULAR ACCIDENT [None]
  - HEART RATE IRREGULAR [None]
  - PUPILLARY REFLEX IMPAIRED [None]
  - VITREOUS DETACHMENT [None]
